FAERS Safety Report 5399712-5 (Version None)
Quarter: 2007Q3

REPORT INFORMATION
  Report Type: 
  Country: None (occurrence: None)
  Receive Date: 20070727
  Receipt Date: 20070716
  Transmission Date: 20080115
  Serious: Yes (Death)
  Sender: FDA-Public Use
  Company Number: US-PFIZER INC-2007060375

PATIENT
  Age: 14 Year
  Sex: Male

DRUGS (1)
  1. ANTITHYMOCYTE IMMUNOGLOBULIN SOLUTION, STERILE [Suspect]
     Indication: BRUTON'S AGAMMAGLOBULINAEMIA

REACTIONS (3)
  - DEMENTIA [None]
  - DYSTONIA [None]
  - PARKINSONISM [None]
